FAERS Safety Report 22540734 (Version 1)
Quarter: 2023Q2

REPORT INFORMATION
  Report Type: Spontaneous
  Country: BR (occurrence: BR)
  Receive Date: 20230609
  Receipt Date: 20230609
  Transmission Date: 20230722
  Serious: Yes (Hospitalization)
  Sender: FDA-Public Use
  Company Number: BR-PFIZER INC-202300127002

PATIENT
  Age: 7 Month
  Sex: Male
  Weight: 9.48 kg

DRUGS (1)
  1. DEPO-PROVERA [Suspect]
     Active Substance: MEDROXYPROGESTERONE ACETATE
     Indication: Contraception
     Dosage: 1 AMPOULE QUARTERLY
     Route: 063
     Dates: start: 202202

REACTIONS (5)
  - Exposure via breast milk [Not Recovered/Not Resolved]
  - Urticaria [Recovered/Resolved]
  - Food allergy [Not Recovered/Not Resolved]
  - Dermatitis atopic [Recovering/Resolving]
  - Milk allergy [Not Recovered/Not Resolved]

NARRATIVE: CASE EVENT DATE: 20220201
